FAERS Safety Report 15226715 (Version 5)
Quarter: 2018Q4

REPORT INFORMATION
  Report Type: Spontaneous
  Country: US (occurrence: US)
  Receive Date: 20180801
  Receipt Date: 20181122
  Transmission Date: 20190204
  Serious: No
  Sender: FDA-Public Use
  Company Number: US-SA-2018SA204960

PATIENT
  Age: 11 Year
  Sex: Male
  Weight: 40 kg

DRUGS (8)
  1. TYLENOL [Concomitant]
     Active Substance: ACETAMINOPHEN
     Indication: PREMEDICATION
     Dosage: 500 MG, PRN
     Route: 048
     Dates: start: 20180510
  2. GABAPENTIN. [Concomitant]
     Active Substance: GABAPENTIN
     Indication: PAIN
     Dosage: 200 MG, TID
     Route: 048
     Dates: start: 20180624
  3. ASPIRINE [Concomitant]
     Active Substance: ASPIRIN
     Indication: ANTIPLATELET THERAPY
     Dosage: 81 MG, QD
     Route: 048
     Dates: start: 20180523
  4. FERROUS SULFATE. [Concomitant]
     Active Substance: FERROUS SULFATE
     Indication: ANAEMIA
     Route: 048
  5. DIPHENHYDRAMINE HYDROCHLORIDE. [Concomitant]
     Active Substance: DIPHENHYDRAMINE HYDROCHLORIDE
     Indication: PREMEDICATION
     Dosage: 40 MG, PRN
     Route: 048
     Dates: start: 20180518
  6. FABRAZYME [Suspect]
     Active Substance: AGALSIDASE BETA
     Indication: FABRY^S DISEASE
     Dosage: 40 MG, QOW
     Route: 041
     Dates: start: 20180510, end: 2018
  7. VITAMIN D [Concomitant]
     Active Substance: CHOLECALCIFEROL
     Indication: SUPPLEMENTATION THERAPY
     Dosage: 2000 IU, QD
     Route: 048
     Dates: start: 20180222
  8. FABRAZYME [Suspect]
     Active Substance: AGALSIDASE BETA
     Dosage: 40 MG, QOW
     Route: 041
     Dates: start: 2018

REACTIONS (5)
  - Dysphagia [Recovered/Resolved]
  - Throat irritation [Recovered/Resolved]
  - Tachycardia [Recovered/Resolved]
  - Nasal congestion [Unknown]
  - Rash [Recovered/Resolved]

NARRATIVE: CASE EVENT DATE: 20180719
